FAERS Safety Report 7114015-6 (Version None)
Quarter: 2010Q4

REPORT INFORMATION
  Report Type: 
  Country: None (occurrence: None)
  Receive Date: 20101119
  Receipt Date: 20101115
  Transmission Date: 20110411
  Serious: Yes (Hospitalization)
  Sender: FDA-Public Use
  Company Number: B0652101B

PATIENT
  Sex: Female

DRUGS (5)
  1. LAPATINIB [Suspect]
     Indication: BREAST CANCER
     Dosage: 1500MG PER DAY
     Route: 048
     Dates: start: 20091103
  2. PACLITAXEL [Suspect]
     Indication: BREAST CANCER
     Dosage: 80MGM2 WEEKLY
     Route: 042
     Dates: start: 20091215
  3. CYCLOPHOSPHAMIDE [Concomitant]
     Indication: BREAST CANCER
     Route: 042
     Dates: start: 20100413
  4. FLUOROURACIL [Concomitant]
     Indication: BREAST CANCER
     Route: 042
     Dates: start: 20100413
  5. EPIRUBICIN [Concomitant]
     Indication: BREAST CANCER
     Route: 042
     Dates: start: 20100413

REACTIONS (9)
  - APHAGIA [None]
  - BLOOD CHLORIDE INCREASED [None]
  - CARBON DIOXIDE DECREASED [None]
  - CHILLS [None]
  - DEHYDRATION [None]
  - ESCHERICHIA URINARY TRACT INFECTION [None]
  - MALAISE [None]
  - URINARY TRACT INFECTION [None]
  - VOMITING [None]
